FAERS Safety Report 9034632 (Version 1)
Quarter: 2013Q1

REPORT INFORMATION
  Report Type: Spontaneous
  Country: GB (occurrence: None)
  Receive Date: 20130115
  Receipt Date: 20130115
  Transmission Date: 20140127
  Serious: Yes (Hospitalization)
  Sender: FDA-Public Use
  Company Number: GB-DEXPHARM-20122114

PATIENT
  Age: 92 Year
  Sex: Female

DRUGS (5)
  1. AMOXICILLIN [Suspect]
     Dosage: DOSE: 500 MG MILLGRAM(S)?SEP. DOSAGES / INTERVAL: 3 IN 1 DAY?CUMULATIVE DOSE: 508500.0 MG MILLGRAM(S)
     Route: 048
     Dates: start: 20100610, end: 20100617
  2. CO-AMOXICLAV [Suspect]
     Dosage: 04-MAY-2011  -  04-MAY-2011  1 DAY?1.2 G  GRAM(S)   INTRAVENOUS (NOT OTHERWISE SPECIFIED)
     Dates: start: 20110504, end: 20110504
  3. CIPROFLOXACIN [Suspect]
     Indication: MORAXELLA INFECTION
     Dosage: 05-MAY-2011  -  10-MAY-2011 ?DOSE:  500 MG MILLGRAM(S) SEP. DOSAGES / INTERVAL:  2 IN 1 DAY?CUMULATIVE DOSE:  10000.0 MG MILLGRAM(S)   ORAL
     Route: 048
     Dates: start: 20110505, end: 20110510
  4. CIPROFLOXACIN [Suspect]
     Dosage: 05-MAY-2011  -  10-MAY-2011  5 DAY?DOSE:  400 MG MILLGRAM(S)  SEP. DOSAGES / INTEVAL:  2 IN 1 DAY?CUMULATIVE DOSE: 8000.0 MG MILLGRAM(S)  INTRAVENOUS (NOT OTHERWISE SPECIFIED)
     Route: 042
     Dates: start: 20110505, end: 20110510
  5. OMEPRAZOLE [Suspect]

REACTIONS (7)
  - Neutrophilia [None]
  - Pneumonia [None]
  - Moraxella test positive [None]
  - Norovirus test positive [None]
  - Diarrhoea [None]
  - Clostridium difficile colitis [None]
  - Pathogen resistance [None]
